FAERS Safety Report 10536725 (Version 2)
Quarter: 2014Q4

REPORT INFORMATION
  Report Type: Spontaneous
  Country: JP (occurrence: JP)
  Receive Date: 20141022
  Receipt Date: 20141031
  Transmission Date: 20150529
  Serious: Yes (Hospitalization, Other)
  Sender: FDA-Public Use
  Company Number: JP-ASTRAZENECA-2014SE79318

PATIENT
  Age: 29557 Day
  Sex: Female

DRUGS (16)
  1. OZAGREL NA [Concomitant]
     Route: 042
     Dates: start: 20141010, end: 20141011
  2. KAZMARIN [Concomitant]
     Active Substance: DOXAZOSIN MESYLATE
  3. SOLDEM [Concomitant]
     Active Substance: DEXTROSE\POTASSIUM CHLORIDE\SODIUM CHLORIDE\SODIUM LACTATE
     Dates: start: 20141014, end: 20141019
  4. AZD6140 [Suspect]
     Active Substance: TICAGRELOR
     Indication: ISCHAEMIC HEART DISEASE PROPHYLAXIS
     Route: 048
     Dates: start: 20140911
  5. METOPLIC [Concomitant]
     Active Substance: METOPROLOL TARTRATE
  6. LIVALO [Suspect]
     Active Substance: PITAVASTATIN CALCIUM
     Route: 065
     Dates: start: 20141003, end: 20141014
  7. BFLUID [Concomitant]
     Active Substance: AMINO ACIDS\DEXTROSE\ELECTROLYTES NOS\VITAMINS
     Dates: start: 20141016, end: 20141020
  8. STRONGER NEOMINOPHAGEN P [Concomitant]
     Dates: start: 20141016, end: 20141023
  9. SODIUM FERROUS CITRATE [Concomitant]
     Dates: start: 20141003, end: 20141014
  10. AZD6140 [Suspect]
     Active Substance: TICAGRELOR
     Indication: ISCHAEMIC HEART DISEASE PROPHYLAXIS
     Route: 048
     Dates: start: 20140912, end: 20141014
  11. TEGRETOL [Concomitant]
     Active Substance: CARBAMAZEPINE
  12. RECALBON [Concomitant]
     Active Substance: MINODRONIC ACID
     Route: 048
  13. VEEN D [Concomitant]
     Active Substance: CALCIUM CHLORIDE\DEXTROSE\POTASSIUM CHLORIDE\SODIUM ACETATE\SODIUM CHLORIDE
     Dates: start: 20141014, end: 20141019
  14. FEBURIC [Suspect]
     Active Substance: FEBUXOSTAT
     Route: 065
     Dates: start: 20141003, end: 20141014
  15. AMLODIPINE [Concomitant]
     Active Substance: AMLODIPINE BESYLATE
  16. WYSTAL [Concomitant]
     Dates: start: 20141014, end: 20141020

REACTIONS (2)
  - Hepatic function abnormal [Recovering/Resolving]
  - Chondrocalcinosis pyrophosphate [Recovering/Resolving]

NARRATIVE: CASE EVENT DATE: 20141014
